FAERS Safety Report 8326588-6 (Version None)
Quarter: 2012Q2

REPORT INFORMATION
  Report Type: 
  Country: None (occurrence: None)
  Receive Date: 20120501
  Receipt Date: 20120424
  Transmission Date: 20120825
  Serious: Yes (Hospitalization)
  Sender: FDA-Public Use
  Company Number: FR-PFIZER INC-2012102012

PATIENT
  Age: 24 Year
  Sex: Male
  Weight: 54.2 kg

DRUGS (9)
  1. HEPT-A-MYL [Concomitant]
     Indication: CARDIOVASCULAR DISORDER
     Dosage: UNK
     Route: 048
     Dates: start: 20040913
  2. ANDROTARDYL [Concomitant]
     Indication: HYPOGONADISM MALE
  3. SOMATROPIN RDNA [Suspect]
     Indication: HYPOPITUITARISM
     Dosage: 0.3 MG, 1X/DAY
     Dates: start: 20030901
  4. LEVOTHYROXINE SODIUM [Concomitant]
     Indication: BLOOD THYROID STIMULATING HORMONE DECREASED
  5. HYDROCORTISONE [Concomitant]
     Indication: BLOOD CORTICOTROPHIN ABNORMAL
     Dosage: UNK
     Route: 048
     Dates: start: 20000524
  6. ANDROTARDYL [Concomitant]
     Indication: LUTEINISING HORMONE DEFICIENCY
  7. SOMATROPIN RDNA [Suspect]
     Dosage: 0.4 MG, 1X/DAY
  8. LEVOTHYROXINE SODIUM [Concomitant]
     Indication: PRIMARY HYPOTHYROIDISM
     Dosage: UNK
     Route: 048
     Dates: start: 20000524
  9. ANDROTARDYL [Concomitant]
     Indication: BLOOD FOLLICLE STIMULATING HORMONE ABNORMAL
     Dosage: UNK
     Dates: start: 20000524

REACTIONS (1)
  - HYPOGLYCAEMIA [None]
